FAERS Safety Report 18546624 (Version 4)
Quarter: 2023Q1

REPORT INFORMATION
  Report Type: Spontaneous
  Country: US (occurrence: US)
  Receive Date: 20201125
  Receipt Date: 20230118
  Transmission Date: 20230417
  Serious: No
  Sender: FDA-Public Use
  Company Number: US-PFIZER INC-2017540172

PATIENT
  Age: 16 Year
  Sex: Female
  Weight: 52.62 kg

DRUGS (2)
  1. XELJANZ [Suspect]
     Active Substance: TOFACITINIB CITRATE
     Indication: Alopecia areata
     Dosage: 5 MG, 2X/DAY
     Route: 048
     Dates: start: 20171129
  2. XELJANZ [Suspect]
     Active Substance: TOFACITINIB CITRATE
     Indication: Alopecia

REACTIONS (4)
  - Off label use [Unknown]
  - Off label use [Unknown]
  - Drug effective for unapproved indication [Unknown]
  - Immune system disorder [Unknown]

NARRATIVE: CASE EVENT DATE: 20171129
